FAERS Safety Report 24872641 (Version 1)
Quarter: 2025Q1

REPORT INFORMATION
  Report Type: Spontaneous
  Country: IT (occurrence: IT)
  Receive Date: 20250122
  Receipt Date: 20250122
  Transmission Date: 20250409
  Serious: Yes (Hospitalization, Other)
  Sender: CELLTRION
  Company Number: IT-CELLTRION INC.-2025IT001398

PATIENT

DRUGS (2)
  1. RITUXIMAB [Suspect]
     Active Substance: RITUXIMAB
     Indication: Anti-myelin-associated glycoprotein associated polyneuropathy
  2. BENDAMUSTINE [Suspect]
     Active Substance: BENDAMUSTINE
     Indication: Anti-myelin-associated glycoprotein associated polyneuropathy

REACTIONS (3)
  - Condition aggravated [Recovering/Resolving]
  - Anti-myelin-associated glycoprotein associated polyneuropathy [Unknown]
  - Intentional product use issue [Unknown]
